FAERS Safety Report 14374456 (Version 1)
Quarter: 2018Q1

REPORT INFORMATION
  Report Type: Spontaneous
  Country: US (occurrence: US)
  Receive Date: 20180111
  Receipt Date: 20180111
  Transmission Date: 20180509
  Serious: Yes (Other)
  Sender: FDA-Public Use
  Company Number: US-009507513-1801USA002604

PATIENT
  Age: 77 Year
  Sex: Female

DRUGS (1)
  1. FOSAMAX [Suspect]
     Active Substance: ALENDRONATE SODIUM
     Indication: OSTEOPOROSIS
     Dosage: 1 TABLET A DAY FOR 10 YEARS
     Route: 048
     Dates: start: 1993, end: 2003

REACTIONS (8)
  - Constipation [Unknown]
  - Jaw disorder [Unknown]
  - Hypoaesthesia [Unknown]
  - Overdose [Unknown]
  - Thyroid cancer [Recovered/Resolved]
  - Tooth loss [Unknown]
  - Abdominal pain [Not Recovered/Not Resolved]
  - Paraesthesia [Unknown]

NARRATIVE: CASE EVENT DATE: 1993
